FAERS Safety Report 8797571 (Version 1)
Quarter: 2012Q4

REPORT INFORMATION
  Report Type: Report from Study
  Country: JP (occurrence: JP)
  Receive Date: 20120920
  Receipt Date: 20120920
  Transmission Date: 20130627
  Serious: Yes (Other)
  Sender: FDA-Public Use
  Company Number: JP-009507513-1209JPN006385

PATIENT
  Age: 60 Year
  Sex: Female
  Weight: 63 kg

DRUGS (11)
  1. PEGINTRON [Suspect]
     Indication: HEPATITIS C
     Dosage: 1.5 Microgram per kilogram, qw
     Route: 058
     Dates: start: 20120221, end: 20120309
  2. PEGINTRON [Suspect]
     Dosage: 0.75 Microgram per kilogram, qw
     Route: 058
     Dates: start: 20120316, end: 20120330
  3. PEGINTRON [Suspect]
     Dosage: 1.5 Microgram per kilogram, qw
     Route: 058
     Dates: start: 20120406
  4. PEGINTRON [Suspect]
     Dosage: 1.5 Microgram per kilogram, qw
     Route: 058
     Dates: start: 20120223, end: 20120518
  5. PEGINTRON [Suspect]
     Dosage: 1.5 Microgram per kilogram, qw
     Route: 058
     Dates: start: 20120615, end: 20120824
  6. REBETOL [Suspect]
     Indication: HEPATITIS C
     Dosage: 600 mg, qd
     Route: 048
     Dates: start: 20120223, end: 20120511
  7. REBETOL [Suspect]
     Dosage: 400 mg, qd
     Route: 048
     Dates: start: 20120518, end: 20120518
  8. REBETOL [Suspect]
     Dosage: 200 mg, qd
     Route: 048
     Dates: start: 20120622, end: 20120622
  9. REBETOL [Suspect]
     Dosage: 1500 mg, qd
     Route: 048
     Dates: start: 20120629, end: 20120824
  10. TELAVIC [Suspect]
     Indication: HEPATITIS C
     Dosage: 1500 mg, qd
     Route: 048
     Dates: start: 20120223, end: 20120511
  11. SALOBEL [Concomitant]
     Indication: HEPATITIS C
     Dosage: 100 mg, UNK
     Route: 048
     Dates: start: 20120413, end: 20120607

REACTIONS (1)
  - Anaemia [Recovered/Resolved]
